FAERS Safety Report 17889955 (Version 2)
Quarter: 2020Q3

REPORT INFORMATION
  Report Type: Report from Study
  Country: US (occurrence: US)
  Receive Date: 20200612
  Receipt Date: 20200810
  Transmission Date: 20201103
  Serious: Yes (Hospitalization)
  Sender: FDA-Public Use
  Company Number: NVSC2020US163321

PATIENT
  Age: 43 Year
  Sex: Female
  Weight: 68.03 kg

DRUGS (2)
  1. GILENYA [Suspect]
     Active Substance: FINGOLIMOD HYDROCHLORIDE
     Dosage: 0.5 MG, QD
     Route: 048
     Dates: start: 20171111, end: 20200722
  2. GILENYA [Suspect]
     Active Substance: FINGOLIMOD HYDROCHLORIDE
     Indication: RELAPSING-REMITTING MULTIPLE SCLEROSIS
     Dosage: 0.5 MG, QD
     Route: 048
     Dates: start: 20130109

REACTIONS (4)
  - Bipolar disorder [Unknown]
  - Mental impairment [Not Recovered/Not Resolved]
  - Multiple sclerosis relapse [Unknown]
  - Stress [Recovering/Resolving]

NARRATIVE: CASE EVENT DATE: 20200601
